FAERS Safety Report 8387099-5 (Version None)
Quarter: 2012Q2

REPORT INFORMATION
  Report Type: 
  Country: None (occurrence: None)
  Receive Date: 20120525
  Receipt Date: 20120517
  Transmission Date: 20120825
  Serious: Yes (Hospitalization, Other)
  Sender: FDA-Public Use
  Company Number: US-ACTELION-A-US2011-43502

PATIENT

DRUGS (2)
  1. TRACLEER [Suspect]
     Indication: PULMONARY ARTERIAL HYPERTENSION
     Dosage: UNK
     Route: 048
     Dates: start: 20040421
  2. COUMADIN [Concomitant]

REACTIONS (4)
  - WHITE BLOOD CELL COUNT DECREASED [None]
  - BLOOD MAGNESIUM DECREASED [None]
  - SQUAMOUS CELL CARCINOMA [None]
  - RESPIRATORY FAILURE [None]
